FAERS Safety Report 4870755-0 (Version None)
Quarter: 2006Q1

REPORT INFORMATION
  Report Type: 
  Country: None (occurrence: None)
  Receive Date: 20060103
  Receipt Date: 20041116
  Transmission Date: 20060701
  Serious: Yes (Hospitalization)
  Sender: FDA-Public Use
  Company Number: CA-ROCHE-386588

PATIENT
  Age: 53 Year
  Sex: Male
  Weight: 70.7 kg

DRUGS (32)
  1. DACLIZUMAB [Suspect]
     Route: 042
     Dates: start: 20041005, end: 20041005
  2. DACLIZUMAB [Suspect]
     Dosage: A TOTAL OF 4 DOSES.
     Route: 042
     Dates: start: 20041006, end: 20041202
  3. MYCOPHENOLATE MOFETIL [Suspect]
     Route: 048
     Dates: start: 20041006, end: 20041114
  4. MYCOPHENOLATE MOFETIL [Suspect]
     Route: 048
  5. MYCOPHENOLATE MOFETIL [Suspect]
     Route: 048
  6. MYCOPHENOLATE MOFETIL [Suspect]
     Route: 048
  7. MYCOPHENOLATE MOFETIL [Suspect]
     Route: 048
  8. MYCOPHENOLATE MOFETIL [Suspect]
     Route: 048
  9. CYCLOSPORINE [Suspect]
     Dosage: FREQUENCY REPORTED AS DIE.
     Route: 048
     Dates: start: 20041006
  10. CYCLOSPORINE [Suspect]
     Route: 048
     Dates: end: 20041113
  11. CYCLOSPORINE [Suspect]
     Route: 048
  12. CYCLOSPORINE [Suspect]
     Route: 048
  13. CYCLOSPORINE [Suspect]
     Route: 048
  14. PREDNISONE TAB [Suspect]
     Route: 048
     Dates: start: 20041012
  15. PREDNISONE TAB [Suspect]
     Route: 048
  16. PREDNISONE TAB [Suspect]
     Route: 048
  17. PANTOPRAZOLE SODIUM [Concomitant]
     Route: 048
     Dates: start: 20041011
  18. LIPITOR [Concomitant]
     Route: 048
     Dates: start: 20041215
  19. VALCYTE [Concomitant]
     Route: 048
     Dates: end: 20050115
  20. ARANESP [Concomitant]
     Route: 058
     Dates: start: 20041014
  21. NORVASC [Concomitant]
     Route: 048
     Dates: start: 20041009
  22. THIAZIDE [Concomitant]
     Dosage: FREQUENCY: DIE
     Route: 048
     Dates: end: 20041014
  23. SEPTRA [Concomitant]
     Route: 048
     Dates: start: 20041007
  24. ACTONEL [Concomitant]
     Route: 048
  25. LOPRESSOR [Concomitant]
     Route: 048
     Dates: start: 20041009
  26. CALCIUM GLUCONATE [Concomitant]
     Route: 048
  27. LASIX [Concomitant]
     Dosage: 80 MG STOPPED ON 25 FEBRUARY 2005.
     Route: 048
     Dates: start: 20041127
  28. PHOSPHATE [Concomitant]
     Dosage: DOSE OF 1000 MG A DAY STARTED ON 22 NOVEMBER 2004.
     Route: 048
  29. AMOXICILLIN AND CLAVULANATE POTASSIUM [Concomitant]
     Dates: start: 20041118, end: 20041125
  30. ATACAND [Concomitant]
     Dates: start: 20050210, end: 20050225
  31. CATAPRES [Concomitant]
     Dates: start: 20041012
  32. SOLU-CORTEF [Concomitant]
     Dates: start: 20050305, end: 20050307

REACTIONS (5)
  - ANASTOMOTIC COMPLICATION [None]
  - ANASTOMOTIC STENOSIS [None]
  - GASTROENTERITIS VIRAL [None]
  - RENAL FAILURE ACUTE [None]
  - URINARY TRACT INFECTION [None]
